FAERS Safety Report 21640224 (Version 1)
Quarter: 2022Q4

REPORT INFORMATION
  Report Type: Spontaneous
  Country: US (occurrence: US)
  Receive Date: 20221124
  Receipt Date: 20221124
  Transmission Date: 20230113
  Serious: No
  Sender: FDA-Public Use
  Company Number: US-SA-SAC20221123000972

PATIENT
  Sex: Female

DRUGS (14)
  1. AUBAGIO [Suspect]
     Active Substance: TERIFLUNOMIDE
     Indication: Multiple sclerosis
     Dosage: 1 DF, QD
     Route: 048
  2. HYDROCODONE [Concomitant]
     Active Substance: HYDROCODONE
  3. HOMATROPINE [Concomitant]
     Active Substance: HOMATROPINE HYDROBROMIDE
  4. AMOXICILLIN\CLAVULANATE POTASSIUM [Concomitant]
     Active Substance: AMOXICILLIN\CLAVULANATE POTASSIUM
  5. BENZONATATE [Concomitant]
     Active Substance: BENZONATATE
  6. METRONIDAZOLE [Concomitant]
     Active Substance: METRONIDAZOLE
  7. TIZANIDINE HYDROCHLORIDE [Concomitant]
     Active Substance: TIZANIDINE HYDROCHLORIDE
  8. BACLOFEN [Concomitant]
     Active Substance: BACLOFEN
  9. GABAPENTIN [Concomitant]
     Active Substance: GABAPENTIN
  10. ZOLPIDEM TARTRATE [Concomitant]
     Active Substance: ZOLPIDEM TARTRATE
  11. MECLIZINE HYDROCHLORIDE [Concomitant]
     Active Substance: MECLIZINE HYDROCHLORIDE
  12. ONDANSETRON HCL [Concomitant]
     Active Substance: ONDANSETRON HYDROCHLORIDE
  13. MODAFINIL [Concomitant]
     Active Substance: MODAFINIL
  14. PROMETHAZINE HYDROCHLORIDE [Concomitant]
     Active Substance: PROMETHAZINE HYDROCHLORIDE

REACTIONS (1)
  - Spinal operation [Unknown]
